FAERS Safety Report 22208038 (Version 1)
Quarter: 2023Q2

REPORT INFORMATION
  Report Type: Spontaneous
  Country: CN (occurrence: CN)
  Receive Date: 20230413
  Receipt Date: 20230413
  Transmission Date: 20230721
  Serious: Yes (Other)
  Sender: FDA-Public Use
  Company Number: CN-009507513-2304CHN002021

PATIENT
  Age: 50 Year
  Sex: Male

DRUGS (3)
  1. IMIPENEM AND CILASTATIN [Suspect]
     Active Substance: CILASTATIN SODIUM\IMIPENEM
     Dosage: UNK
  2. AMOXICILLIN [Suspect]
     Active Substance: AMOXICILLIN
     Dosage: UNK
  3. CEFOPERAZONE [Suspect]
     Active Substance: CEFOPERAZONE
     Dosage: UNK

REACTIONS (3)
  - Autoimmune haemolytic anaemia [Recovering/Resolving]
  - Acute haemolytic transfusion reaction [Unknown]
  - Drug specific antibody [Unknown]
